FAERS Safety Report 22145504 (Version 1)
Quarter: 2023Q1

REPORT INFORMATION
  Report Type: Spontaneous
  Country: US (occurrence: US)
  Receive Date: 20230328
  Receipt Date: 20230328
  Transmission Date: 20230418
  Serious: No
  Sender: FDA-Public Use
  Company Number: US-ALKEM LABORATORIES LIMITED-US-ALKEM-2022-14978

PATIENT
  Age: 44 Year
  Sex: Male

DRUGS (3)
  1. MORPHINE SULFATE [Suspect]
     Active Substance: MORPHINE SULFATE
     Indication: Pain in extremity
     Dosage: 0.2 ML/H (0.083 MG/ML PRESERVATIVE-FREE MORPHINE) (INFUSION)
     Route: 037
  2. MORPHINE SULFATE [Suspect]
     Active Substance: MORPHINE SULFATE
     Dosage: 0.9 ML/H (1.7928 MG OVER A 24-HOUR PERIOD) (INFUSION)
     Route: 037
  3. MORPHINE SULFATE [Suspect]
     Active Substance: MORPHINE SULFATE
     Dosage: 1.493 MG/24 H (PRESERVATIVE-FREE MORPHINE 10 MG/ML) (INFUSION)
     Route: 037

REACTIONS (1)
  - Hiccups [Recovered/Resolved]
